FAERS Safety Report 4439084-3 (Version None)
Quarter: 2004Q3

REPORT INFORMATION
  Report Type: 
  Country: None (occurrence: None)
  Receive Date: 20040901
  Receipt Date: 20040519
  Transmission Date: 20050211
  Serious: Yes (Hospitalization)
  Sender: FDA-Public Use
  Company Number: JP-BRISTOL-MYERS SQUIBB COMPANY-12591749

PATIENT
  Age: 64 Year
  Sex: Female

DRUGS (5)
  1. MITOMYCIN-C BULK POWDER [Suspect]
     Indication: OVARIAN CANCER
     Dosage: THERAPY DATES: 20 MG  05 TO 19-DEC-2003; 18 MG 27-JAN TO 09-FEB-2004; 16 MG 09 TO 24-MAR-2004
     Route: 042
     Dates: start: 20040324, end: 20040324
  2. TAXOL [Suspect]
     Indication: OVARIAN CANCER
     Route: 042
     Dates: start: 20040428, end: 20040428
  3. PARAPLATIN [Suspect]
     Indication: OVARIAN CANCER
     Dosage: THERAPY DATES: 300 MG ON 16-OCT-2003 AND 400 MG ON 28-APR-2004
     Route: 042
     Dates: start: 20040428, end: 20040428
  4. CISPLATIN [Suspect]
     Indication: OVARIAN CANCER
     Dosage: THERAPY DATES: 24-OCT TO 02-NOV-2003
     Route: 042
     Dates: start: 20031102, end: 20031102
  5. TOPOTECIN [Suspect]
     Indication: OVARIAN CANCER
     Dosage: THERAPY DATES: 380MG  05 TO 19-DEC-03; 340MG 27-JAN TO 09-FEB-04; 300MG 09 TO 24-MAR-04
     Route: 042
     Dates: start: 20040324, end: 20040324

REACTIONS (1)
  - LEUKOENCEPHALOPATHY [None]
